FAERS Safety Report 16570513 (Version 2)
Quarter: 2019Q3

REPORT INFORMATION
  Report Type: Report from Study
  Country: None (occurrence: FI)
  Receive Date: 20190715
  Receipt Date: 20190724
  Transmission Date: 20191004
  Serious: Yes (Hospitalization)
  Sender: FDA-Public Use
  Company Number: FI-ABBVIE-19K-055-2847200-00

PATIENT
  Age: 67 Year
  Sex: Female

DRUGS (3)
  1. DUODOPA [Suspect]
     Active Substance: CARBIDOPA\LEVODOPA
     Indication: PARKINSON^S DISEASE
     Route: 050
     Dates: start: 20190703, end: 201907
  2. DUODOPA [Suspect]
     Active Substance: CARBIDOPA\LEVODOPA
     Dosage: DOSE INCREASED
     Route: 050
     Dates: start: 201907, end: 201907
  3. ROSUVASTATIN. [Concomitant]
     Active Substance: ROSUVASTATIN
     Indication: PRODUCT USED FOR UNKNOWN INDICATION

REACTIONS (13)
  - Mental disorder [Unknown]
  - Tremor [Unknown]
  - Asthenia [Unknown]
  - Mobility decreased [Unknown]
  - Disorientation [Unknown]
  - Device difficult to use [Unknown]
  - Weight decreased [Unknown]
  - Restlessness [Recovered/Resolved]
  - Drug intolerance [Unknown]
  - Illusion [Unknown]
  - Neurological symptom [Unknown]
  - Spinal deformity [Unknown]
  - Condition aggravated [Unknown]

NARRATIVE: CASE EVENT DATE: 201907
